FAERS Safety Report 17666288 (Version 3)
Quarter: 2020Q2

REPORT INFORMATION
  Report Type: Spontaneous
  Country: US (occurrence: US)
  Receive Date: 20200414
  Receipt Date: 20200603
  Transmission Date: 20200713
  Serious: Yes (Hospitalization, Other)
  Sender: FDA-Public Use
  Company Number: US-PFIZER INC-2020153191

PATIENT
  Age: 57 Year
  Sex: Female
  Weight: 79.38 kg

DRUGS (2)
  1. XELJANZ XR [Suspect]
     Active Substance: TOFACITINIB CITRATE
     Indication: RHEUMATOID ARTHRITIS
     Dosage: 11 MG, 1X/DAY (1 TABLET EVERY MORNING)
     Route: 048
     Dates: start: 201601
  2. XELJANZ XR [Suspect]
     Active Substance: TOFACITINIB CITRATE
     Indication: PSORIATIC ARTHROPATHY

REACTIONS (13)
  - Blister [Unknown]
  - Limb discomfort [Unknown]
  - Joint injury [Recovering/Resolving]
  - Fall [Recovering/Resolving]
  - Anxiety [Unknown]
  - Staphylococcal infection [Recovered/Resolved]
  - Dermatomyositis [Recovering/Resolving]
  - Upper respiratory tract infection bacterial [Unknown]
  - Squamous cell carcinoma [Unknown]
  - Precancerous skin lesion [Unknown]
  - Drug ineffective [Unknown]
  - Cervix disorder [Unknown]
  - Loss of personal independence in daily activities [Unknown]

NARRATIVE: CASE EVENT DATE: 201807
